FAERS Safety Report 20105197 (Version 1)
Quarter: 2021Q4

REPORT INFORMATION
  Report Type: Spontaneous
  Country: CA (occurrence: CA)
  Receive Date: 20211124
  Receipt Date: 20211124
  Transmission Date: 20220303
  Serious: Yes (Life-Threatening, Other)
  Sender: FDA-Public Use
  Company Number: CA-ABBVIE-21K-028-4173626-00

PATIENT
  Age: 42 Year
  Sex: Female
  Weight: 61 kg

DRUGS (4)
  1. SKYRIZI [Suspect]
     Active Substance: RISANKIZUMAB-RZAA
     Indication: Psoriasis
     Route: 058
  2. SEROQUEL [Concomitant]
     Active Substance: QUETIAPINE FUMARATE
     Indication: Product used for unknown indication
  3. EFFEXOR [Concomitant]
     Active Substance: VENLAFAXINE HYDROCHLORIDE
     Indication: Product used for unknown indication
     Dosage: EXTENDED RELEASE
  4. PRAZOSIN [Concomitant]
     Active Substance: PRAZOSIN
     Indication: Product used for unknown indication

REACTIONS (9)
  - Breast neoplasm [Not Recovered/Not Resolved]
  - Metastases to central nervous system [Not Recovered/Not Resolved]
  - Cerebral mass effect [Not Recovered/Not Resolved]
  - Lymphadenopathy [Not Recovered/Not Resolved]
  - Adrenal disorder [Not Recovered/Not Resolved]
  - Adrenal adenoma [Not Recovered/Not Resolved]
  - Headache [Not Recovered/Not Resolved]
  - Photophobia [Not Recovered/Not Resolved]
  - Vomiting [Not Recovered/Not Resolved]
